FAERS Safety Report 4281429-1 (Version None)
Quarter: 2004Q1

REPORT INFORMATION
  Report Type: 
  Country: None (occurrence: None)
  Receive Date: 20040120
  Receipt Date: 20031210
  Transmission Date: 20041129
  Serious: No
  Sender: FDA-Public Use
  Company Number: 2003-09-2151

PATIENT
  Age: 37 Year
  Sex: Male

DRUGS (2)
  1. CLARINEX [Suspect]
     Dosage: 5 MG ORAL
     Route: 048
  2. ZESTRIL [Concomitant]

REACTIONS (2)
  - CHEST PAIN [None]
  - PAIN IN EXTREMITY [None]
